FAERS Safety Report 17846827 (Version 1)
Quarter: 2020Q2

REPORT INFORMATION
  Report Type: Spontaneous
  Country: HR (occurrence: HR)
  Receive Date: 20200601
  Receipt Date: 20200601
  Transmission Date: 20200714
  Serious: Yes (Other)
  Sender: FDA-Public Use
  Company Number: HR-TEVA-2020-HR-1241361

PATIENT
  Sex: Female

DRUGS (1)
  1. LOQUEN [Suspect]
     Active Substance: QUETIAPINE FUMARATE
     Dosage: 50 DOSAGEFORM
     Route: 048
     Dates: start: 20200128, end: 20200128

REACTIONS (2)
  - Intentional overdose [Unknown]
  - Suicide attempt [Unknown]

NARRATIVE: CASE EVENT DATE: 20200128
